FAERS Safety Report 6072017-5 (Version None)
Quarter: 2009Q1

REPORT INFORMATION
  Report Type: 
  Country: None (occurrence: None)
  Receive Date: 20090205
  Receipt Date: 20090205
  Transmission Date: 20090719
  Serious: Yes (Other)
  Sender: FDA-Public Use
  Company Number: None

PATIENT
  Sex: Male
  Weight: 63.5036 kg

DRUGS (2)
  1. PAROXETINE HCL [Suspect]
     Indication: CARDIAC DISORDER
     Dosage: 1 A DAY PO
     Route: 048
     Dates: start: 20010201, end: 20090203
  2. PAROXETINE HCL [Suspect]
     Indication: STRESS
     Dosage: 1 A DAY PO
     Route: 048
     Dates: start: 20010201, end: 20090203

REACTIONS (2)
  - ACTIVITIES OF DAILY LIVING IMPAIRED [None]
  - PARAESTHESIA [None]
